FAERS Safety Report 18177468 (Version 1)
Quarter: 2020Q3

REPORT INFORMATION
  Report Type: Spontaneous
  Country: US (occurrence: US)
  Receive Date: 20200820
  Receipt Date: 20200820
  Transmission Date: 20201103
  Serious: Yes (Other)
  Sender: FDA-Public Use
  Company Number: NVSC2020US225836

PATIENT
  Sex: Female
  Weight: 58.5 kg

DRUGS (3)
  1. VIVELLE?DOT [Suspect]
     Active Substance: ESTRADIOL
     Indication: PRODUCT USED FOR UNKNOWN INDICATION
     Dosage: UNK
     Route: 065
     Dates: start: 2011
  2. MINIVELLE [Suspect]
     Active Substance: ESTRADIOL
     Indication: ARTIFICIAL MENOPAUSE
     Dosage: 0.1 MG, QD (STARTED ATLEAST 5 YEARS AGO)
     Route: 065
  3. ESTRADIOL. [Suspect]
     Active Substance: ESTRADIOL
     Indication: PRODUCT USED FOR UNKNOWN INDICATION
     Dosage: UNK
     Route: 065

REACTIONS (6)
  - Allergy to chemicals [Unknown]
  - Application site pain [Unknown]
  - Product adhesion issue [Unknown]
  - Systemic lupus erythematosus [Unknown]
  - Psoriatic arthropathy [Unknown]
  - Application site burn [Unknown]

NARRATIVE: CASE EVENT DATE: 2019
